FAERS Safety Report 9727810 (Version 1)
Quarter: 2013Q4

REPORT INFORMATION
  Report Type: Spontaneous
  Country: GB (occurrence: GB)
  Receive Date: 20131204
  Receipt Date: 20131204
  Transmission Date: 20140711
  Serious: Yes (Other)
  Sender: FDA-Public Use
  Company Number: GB-MICRO LABS LIMITED-BB2013-01168

PATIENT
  Age: 30 Year
  Sex: 0
  Weight: 86 kg

DRUGS (2)
  1. SIMVASTATIN [Suspect]
     Indication: BLOOD CHOLESTEROL
     Route: 048
     Dates: start: 201101, end: 201310
  2. METFORMIN [Concomitant]
     Indication: DIABETES MELLITUS
     Dosage: STOPPED DUE TO NOT NEED.
     Route: 065
     Dates: start: 201001, end: 201310

REACTIONS (10)
  - Nervous system disorder [Recovering/Resolving]
  - Parkinsonism [Recovering/Resolving]
  - Tremor [Recovering/Resolving]
  - Muscle spasms [Recovering/Resolving]
  - Tinnitus [Recovering/Resolving]
  - Fatigue [Recovering/Resolving]
  - Balance disorder [Recovering/Resolving]
  - Insomnia [Recovering/Resolving]
  - Feeling abnormal [Recovering/Resolving]
  - Emotional distress [Unknown]
